FAERS Safety Report 5385551-8 (Version None)
Quarter: 2007Q3

REPORT INFORMATION
  Report Type: 
  Country: None (occurrence: None)
  Receive Date: 20070712
  Receipt Date: 20070706
  Transmission Date: 20080115
  Serious: Yes (Death)
  Sender: FDA-Public Use
  Company Number: B0477560A

PATIENT
  Age: 29 Year
  Sex: Female

DRUGS (3)
  1. PAXIL [Suspect]
     Indication: MAJOR DEPRESSION
     Dosage: 10MG PER DAY
     Route: 048
     Dates: start: 20070621, end: 20070621
  2. SOLANAX [Concomitant]
     Dosage: 1TAB THREE TIMES PER DAY
     Route: 048
  3. AMOBAN [Concomitant]
     Dosage: 1TAB PER DAY
     Route: 048

REACTIONS (3)
  - CARDIO-RESPIRATORY ARREST [None]
  - DEATH [None]
  - SUICIDE ATTEMPT [None]
